FAERS Safety Report 4826905-5 (Version None)
Quarter: 2005Q4

REPORT INFORMATION
  Report Type: 
  Country: None (occurrence: None)
  Receive Date: 20051114
  Receipt Date: 20051102
  Transmission Date: 20060501
  Serious: Yes (Death, Hospitalization)
  Sender: FDA-Public Use
  Company Number: US-JNJFOC-20051100864

PATIENT
  Sex: Female

DRUGS (6)
  1. REMICADE [Suspect]
     Indication: CROHN'S DISEASE
     Route: 042
  2. PREDNISONE [Concomitant]
     Indication: CROHN'S DISEASE
  3. ASACOL [Concomitant]
     Indication: CROHN'S DISEASE
  4. ENTOCORT [Concomitant]
     Indication: CROHN'S DISEASE
  5. STEROIDS [Concomitant]
     Route: 042
  6. HEPARIN [Concomitant]

REACTIONS (5)
  - ABDOMINAL DISTENSION [None]
  - AORTIC THROMBOSIS [None]
  - HYPOTENSION [None]
  - SEPSIS [None]
  - TACHYCARDIA [None]
